FAERS Safety Report 4335083-0 (Version None)
Quarter: 2004Q2

REPORT INFORMATION
  Report Type: 
  Country: None (occurrence: None)
  Receive Date: 20040405
  Receipt Date: 20040324
  Transmission Date: 20050107
  Serious: Yes (Death, Hospitalization)
  Sender: FDA-Public Use
  Company Number: K200400427

PATIENT
  Age: 83 Year
  Sex: Female

DRUGS (6)
  1. ALTACE [Suspect]
     Indication: ESSENTIAL HYPERTENSION
     Dosage: 2.5 MG, QD, ORAL
     Route: 048
     Dates: start: 20031220, end: 20040104
  2. LASIX [Suspect]
     Dosage: QD
     Dates: start: 20031220, end: 20040104
  3. POTASSIUM CHLORIDE [Suspect]
     Dosage: 1200 MG, QD, ORAL
     Route: 048
     Dates: start: 20031220, end: 20040104
  4. DIGOXIN [Concomitant]
  5. PREVISCAN (FLUINDIONE) [Concomitant]
  6. GLUCOPHAGE [Concomitant]

REACTIONS (5)
  - CARDIOACTIVE DRUG LEVEL INCREASED [None]
  - DEHYDRATION [None]
  - DIARRHOEA [None]
  - HYPERKALAEMIA [None]
  - RENAL FAILURE ACUTE [None]
